FAERS Safety Report 9687255 (Version 1)
Quarter: 2013Q4

REPORT INFORMATION
  Report Type: Spontaneous
  Country: US (occurrence: US)
  Receive Date: 20131114
  Receipt Date: 20131114
  Transmission Date: 20140711
  Serious: No
  Sender: FDA-Public Use
  Company Number: US-009507513-1311USA003338

PATIENT
  Sex: Female
  Weight: 93.42 kg

DRUGS (2)
  1. IMPLANON [Suspect]
     Dosage: UNK
     Route: 059
     Dates: start: 201307
  2. IMPLANON [Suspect]
     Dosage: UNK
     Route: 059
     Dates: start: 201007, end: 201307

REACTIONS (8)
  - Food craving [Not Recovered/Not Resolved]
  - Skin striae [Not Recovered/Not Resolved]
  - Skin discolouration [Not Recovered/Not Resolved]
  - Abdominal pain upper [Not Recovered/Not Resolved]
  - Unintended pregnancy [Not Recovered/Not Resolved]
  - Vaginal discharge [Not Recovered/Not Resolved]
  - Weight increased [Not Recovered/Not Resolved]
  - Menstruation delayed [Not Recovered/Not Resolved]
